FAERS Safety Report 18221963 (Version 1)
Quarter: 2020Q3

REPORT INFORMATION
  Report Type: Spontaneous
  Country: NL (occurrence: FR)
  Receive Date: 20200902
  Receipt Date: 20200902
  Transmission Date: 20201103
  Serious: Yes (Other)
  Sender: FDA-Public Use
  Company Number: FR-FRESENIUS KABI-FK202008784

PATIENT
  Age: 49 Year
  Sex: Female
  Weight: 82 kg

DRUGS (4)
  1. IRINOTECAN 20 MG/ML CONCENTRATE FOR SOLUTION FOR INFUSION [Suspect]
     Active Substance: IRINOTECAN
     Indication: METASTASES TO OVARY
     Route: 042
     Dates: start: 20200130, end: 20200130
  2. OXALIPLATIN. [Suspect]
     Active Substance: OXALIPLATIN
     Indication: METASTASES TO OVARY
     Route: 042
     Dates: start: 20200130, end: 20200130
  3. FLUOROURACIL. [Concomitant]
     Active Substance: FLUOROURACIL
     Indication: PRODUCT USED FOR UNKNOWN INDICATION
     Route: 042
  4. CALCIUM FOLINATE [Concomitant]
     Active Substance: LEUCOVORIN CALCIUM
     Indication: PRODUCT USED FOR UNKNOWN INDICATION
     Route: 042

REACTIONS (2)
  - Erythema [Recovered/Resolved]
  - Paraesthesia [Recovered/Resolved]

NARRATIVE: CASE EVENT DATE: 20200130
